FAERS Safety Report 7057958-4 (Version None)
Quarter: 2010Q4

REPORT INFORMATION
  Report Type: 
  Country: None (occurrence: None)
  Receive Date: 20101021
  Receipt Date: 20101021
  Transmission Date: 20110411
  Serious: Yes (Other)
  Sender: FDA-Public Use
  Company Number: None

PATIENT
  Age: 51 Year
  Sex: Female
  Weight: 54.4316 kg

DRUGS (1)
  1. TOPIRAMATE [Suspect]
     Indication: MIGRAINE
     Dates: start: 20101001, end: 20101016

REACTIONS (11)
  - ABDOMINAL DISCOMFORT [None]
  - ABDOMINAL PAIN UPPER [None]
  - ASTHENIA [None]
  - BOWEL MOVEMENT IRREGULARITY [None]
  - DEPRESSION [None]
  - FATIGUE [None]
  - HAEMORRHAGE [None]
  - INSOMNIA [None]
  - MALAISE [None]
  - THINKING ABNORMAL [None]
  - WEIGHT DECREASED [None]
